FAERS Safety Report 5246205-1 (Version None)
Quarter: 2007Q1

REPORT INFORMATION
  Report Type: 
  Country: None (occurrence: None)
  Receive Date: 20070220
  Receipt Date: 20070205
  Transmission Date: 20070707
  Serious: Yes (Hospitalization)
  Sender: FDA-Public Use
  Company Number: 2007EU000349

PATIENT
  Age: 62 Year
  Sex: Female
  Weight: 70 kg

DRUGS (2)
  1. PROGRAF [Suspect]
     Dosage: 10 MG, D, ORAL
     Route: 048
     Dates: start: 20060207, end: 20060403
  2. CELLCEPT [Suspect]
     Dosage: 1 G, D, ORAL
     Route: 048
     Dates: start: 20060224

REACTIONS (2)
  - HEPATITIS CHOLESTATIC [None]
  - NORMOCHROMIC NORMOCYTIC ANAEMIA [None]
